FAERS Safety Report 9761683 (Version 1)
Quarter: 2013Q4

REPORT INFORMATION
  Report Type: Spontaneous
  Country: CA (occurrence: CA)
  Receive Date: 20131216
  Receipt Date: 20131216
  Transmission Date: 20140711
  Serious: Yes (Hospitalization, Other)
  Sender: FDA-Public Use
  Company Number: CA-B.I. PHARMACEUTICALS,INC./RIDGEFIELD-2013-BI-41804CN

PATIENT
  Age: 48 Year
  Sex: Female

DRUGS (1)
  1. PRADAX [Suspect]
     Dates: start: 20111201, end: 20120207

REACTIONS (5)
  - Myocardial infarction [Unknown]
  - Intracardiac thrombus [Unknown]
  - Chest pain [Unknown]
  - Menstruation irregular [Unknown]
  - Fatigue [Unknown]
